FAERS Safety Report 8491789-3 (Version None)
Quarter: 2012Q3

REPORT INFORMATION
  Report Type: 
  Country: None (occurrence: None)
  Receive Date: 20120706
  Receipt Date: 20120629
  Transmission Date: 20120928
  Serious: Yes (Life-Threatening, Other)
  Sender: FDA-Public Use
  Company Number: ZA-ASTRAZENECA-2012SE44729

PATIENT
  Age: 81 Year
  Sex: Female

DRUGS (2)
  1. DOBUTAMINE HCL [Concomitant]
     Indication: SHOCK
     Dates: start: 20120502, end: 20120504
  2. MEROPENEM [Suspect]
     Indication: SEPSIS
     Route: 042
     Dates: start: 20120430, end: 20120505

REACTIONS (1)
  - THROMBOCYTOPENIA [None]
